FAERS Safety Report 9314297 (Version 2)
Quarter: 2013Q2

REPORT INFORMATION
  Report Type: Spontaneous
  Country: SG (occurrence: None)
  Receive Date: 20130522
  Receipt Date: 20130529
  Transmission Date: 20140414
  Serious: Yes (Other)
  Sender: FDA-Public Use
  Company Number: 2013AP005324

PATIENT
  Age: 84 Year
  Sex: Female

DRUGS (3)
  1. ALENDRONIC ACID [Suspect]
  2. CALCIUM (CALCIUM) [Concomitant]
  3. VITAMIN D/00107901/ (ERGOCALCIFEROL) [Concomitant]

REACTIONS (5)
  - Stress fracture [None]
  - Periprosthetic fracture [None]
  - Hip fracture [None]
  - Ulna fracture [None]
  - Osteopenia [None]
